FAERS Safety Report 5754641-X (Version None)
Quarter: 2008Q2

REPORT INFORMATION
  Report Type: 
  Country: None (occurrence: None)
  Receive Date: 20080530
  Receipt Date: 20080520
  Transmission Date: 20081010
  Serious: Yes (Other)
  Sender: FDA-Public Use
  Company Number: US-PFIZER INC-2008043627

PATIENT
  Sex: Female

DRUGS (7)
  1. DILANTIN [Suspect]
     Indication: CONVULSION
  2. VITAMIN B COMPLEX CAP [Concomitant]
  3. VALIUM [Concomitant]
  4. MELLARIL [Concomitant]
  5. THORAZINE [Concomitant]
  6. TEGRETOL [Concomitant]
  7. STELAZINE [Concomitant]

REACTIONS (7)
  - ANTICONVULSANT DRUG LEVEL INCREASED [None]
  - CHLAMYDIAL INFECTION [None]
  - CONVULSION [None]
  - INSOMNIA [None]
  - LIVER DISORDER [None]
  - MOOD SWINGS [None]
  - WEIGHT INCREASED [None]
